FAERS Safety Report 6080054-X (Version None)
Quarter: 2009Q1

REPORT INFORMATION
  Report Type: 
  Country: None (occurrence: None)
  Receive Date: 20090217
  Receipt Date: 20090203
  Transmission Date: 20090719
  Serious: Yes (Other)
  Sender: FDA-Public Use
  Company Number: US-ELI_LILLY_AND_COMPANY-US200902001008

PATIENT
  Sex: Female

DRUGS (3)
  1. CYMBALTA [Suspect]
     Indication: FIBROMYALGIA
     Dosage: 90 MG, UNK
     Dates: start: 20070101
  2. XANAX [Concomitant]
     Dosage: UNK, UNK
     Dates: start: 20070101
  3. ALTACE [Concomitant]
     Dosage: 10 MG, UNK
     Dates: start: 20070101

REACTIONS (5)
  - DERMATITIS BULLOUS [None]
  - DRY SKIN [None]
  - ERYTHEMA [None]
  - ERYTHEMA MULTIFORME [None]
  - PRURITUS [None]
